FAERS Safety Report 4472053-6 (Version None)
Quarter: 2004Q4

REPORT INFORMATION
  Report Type: 
  Country: None (occurrence: None)
  Receive Date: 20041012
  Receipt Date: 20041006
  Transmission Date: 20050328
  Serious: Yes (Other)
  Sender: FDA-Public Use
  Company Number: 002886

PATIENT
  Age: 56 Year
  Sex: Female

DRUGS (3)
  1. MEDROXYPROGESTERONE ACETATE [Suspect]
     Dates: start: 20000601, end: 20000801
  2. ESTRADIOL [Suspect]
     Dates: start: 20000601, end: 20000801
  3. MEDROXYPROGESTERONE ACETATE [Suspect]
     Dates: start: 19991201, end: 20021001

REACTIONS (1)
  - BREAST CANCER FEMALE [None]
